FAERS Safety Report 4354123-6 (Version None)
Quarter: 2004Q2

REPORT INFORMATION
  Report Type: 
  Country: None (occurrence: None)
  Receive Date: 20040506
  Receipt Date: 20040506
  Transmission Date: 20050107
  Serious: Yes (Other)
  Sender: FDA-Public Use
  Company Number: None

PATIENT
  Age: 52 Year
  Sex: Female
  Weight: 56.246 kg

DRUGS (1)
  1. FLEXI GRAFT ANTERIOR TIBIAL TENDON ALLOGRAFT (#1 OF 4) [Suspect]
     Dates: start: 20040331

REACTIONS (2)
  - GRAFT COMPLICATION [None]
  - POSTOPERATIVE INFECTION [None]
